FAERS Safety Report 9875027 (Version 2)
Quarter: 2014Q1

REPORT INFORMATION
  Report Type: Report from Study
  Country: BR (occurrence: BR)
  Receive Date: 20140206
  Receipt Date: 20140326
  Transmission Date: 20141002
  Serious: Yes (Death, Hospitalization)
  Sender: FDA-Public Use
  Company Number: PHHY2014BR013824

PATIENT
  Age: 9 Year
  Sex: Male

DRUGS (2)
  1. RITALIN LA [Suspect]
     Indication: DISTURBANCE IN ATTENTION
     Dosage: UNK UKN, UNK
  2. DAFORIN [Concomitant]
     Dosage: UNK UKN, UNK

REACTIONS (5)
  - Death [Fatal]
  - Meningitis meningococcal [Unknown]
  - Pyrexia [Unknown]
  - Learning disorder [Unknown]
  - Disturbance in attention [Unknown]
